FAERS Safety Report 8601037-9 (Version None)
Quarter: 2012Q3

REPORT INFORMATION
  Report Type: 
  Country: None (occurrence: None)
  Receive Date: 20120817
  Receipt Date: 20120808
  Transmission Date: 20120928
  Serious: Yes (Death, Other)
  Sender: FDA-Public Use
  Company Number: JP-GENZYME-FLUD-1001532

PATIENT
  Age: 28 Year
  Sex: Female

DRUGS (7)
  1. FLUDARA [Suspect]
     Indication: BONE MARROW CONDITIONING REGIMEN
     Dosage: 25 MG/M2, QD
     Route: 065
     Dates: start: 20100401, end: 20100101
  2. CYCLOSPORINE [Concomitant]
     Indication: IMMUNOSUPPRESSION
     Dosage: UNK
     Route: 065
     Dates: start: 20100101
  3. METHOTREXATE [Concomitant]
     Indication: PROPHYLAXIS AGAINST GRAFT VERSUS HOST DISEASE
     Dosage: UNK
     Route: 065
     Dates: start: 20100401, end: 20100101
  4. TACROLIMUS [Concomitant]
     Indication: PROPHYLAXIS AGAINST GRAFT VERSUS HOST DISEASE
     Dosage: UNK
     Route: 065
     Dates: start: 20100401, end: 20100101
  5. PREDNISOLONE [Concomitant]
     Indication: ACUTE GRAFT VERSUS HOST DISEASE
     Dosage: 1 MG/KG, QD
     Route: 065
     Dates: start: 20100101, end: 20100101
  6. PREDNISOLONE [Concomitant]
     Dosage: UNK (DOSE INCREASED)
     Route: 065
  7. MELPHALAN HYDROCHLORIDE [Concomitant]
     Indication: ACUTE LYMPHOCYTIC LEUKAEMIA RECURRENT
     Dosage: 70 MG/M2, QD
     Route: 065
     Dates: start: 20100401, end: 20100101

REACTIONS (3)
  - ENCEPHALITIS HERPES [None]
  - ACUTE GRAFT VERSUS HOST DISEASE [None]
  - ENCEPHALOMYELITIS [None]
